FAERS Safety Report 7429398-7 (Version None)
Quarter: 2011Q2

REPORT INFORMATION
  Report Type: 
  Country: None (occurrence: None)
  Receive Date: 20110421
  Receipt Date: 20110415
  Transmission Date: 20111010
  Serious: Yes (Other)
  Sender: FDA-Public Use
  Company Number: A0923142A

PATIENT
  Age: 46 Year
  Sex: Male

DRUGS (2)
  1. ALLI [Suspect]
     Indication: WEIGHT LOSS DIET
     Route: 048
  2. ADVIL LIQUI-GELS [Concomitant]

REACTIONS (2)
  - NEPHROLITHIASIS [None]
  - STEATORRHOEA [None]
